FAERS Safety Report 5106172-8 (Version None)
Quarter: 2006Q3

REPORT INFORMATION
  Report Type: 
  Country: None (occurrence: None)
  Receive Date: 20060912
  Receipt Date: 20060830
  Transmission Date: 20061208
  Serious: Yes (Death)
  Sender: FDA-Public Use
  Company Number: GT200609000017

PATIENT
  Age: 28 Year
  Sex: Female

DRUGS (2)
  1. OLANZAPINE [Suspect]
     Indication: CONVERSION DISORDER
     Dosage: 5 MG, 2/D, ORAL
     Route: 048
     Dates: start: 20060821, end: 20060822
  2. CLONAZEPAM [Concomitant]

REACTIONS (2)
  - CARDIAC ARREST [None]
  - HYPOTONIA [None]
